FAERS Safety Report 23480616 (Version 1)
Quarter: 2024Q1

REPORT INFORMATION
  Report Type: Report from Study
  Country: GB (occurrence: GB)
  Receive Date: 20240205
  Receipt Date: 20240205
  Transmission Date: 20240410
  Serious: Yes (Other)
  Sender: FDA-Public Use
  Company Number: GB-JNJFOC-20230811335

PATIENT
  Age: 66 Year
  Sex: Male

DRUGS (2)
  1. ERLEADA [Suspect]
     Active Substance: APALUTAMIDE
     Indication: Prostate cancer
     Route: 048
     Dates: start: 20230714
  2. GOSERELIN [Concomitant]
     Active Substance: GOSERELIN
     Route: 050

REACTIONS (3)
  - Blood alkaline phosphatase increased [Recovered/Resolved]
  - Blood testosterone increased [Not Recovered/Not Resolved]
  - Large intestine polyp [Not Recovered/Not Resolved]

NARRATIVE: CASE EVENT DATE: 20230801
